FAERS Safety Report 4600929-5 (Version None)
Quarter: 2005Q1

REPORT INFORMATION
  Report Type: 
  Country: None (occurrence: None)
  Receive Date: 20050127
  Receipt Date: 20041025
  Transmission Date: 20050727
  Serious: No
  Sender: FDA-Public Use
  Company Number: USA041082116

PATIENT
  Age: 13 Year
  Sex: Male
  Weight: 52 kg

DRUGS (1)
  1. STRATTERA [Suspect]
     Indication: ATTENTION DEFICIT/HYPERACTIVITY DISORDER
     Dosage: 60 MG IN THE EVENING
     Dates: start: 20040201

REACTIONS (3)
  - DISTURBANCE IN ATTENTION [None]
  - RESTLESSNESS [None]
  - VOMITING [None]
